FAERS Safety Report 17431632 (Version 1)
Quarter: 2020Q1

REPORT INFORMATION
  Report Type: Spontaneous
  Country: US (occurrence: US)
  Receive Date: 20200218
  Receipt Date: 20200218
  Transmission Date: 20200409
  Serious: Yes (Hospitalization, Other)
  Sender: FDA-Public Use
  Company Number: US-SUPERNUS PHARMACEUTICALS, INC.-2020SUP00022

PATIENT
  Age: 37 Year
  Sex: Female
  Weight: 66.67 kg

DRUGS (3)
  1. OXTELLAR XR [Suspect]
     Active Substance: OXCARBAZEPINE
     Indication: EPILEPSY
     Dosage: 600 MG, 2X/DAY
     Route: 048
     Dates: start: 2019
  2. ATIVAN [Suspect]
     Active Substance: LORAZEPAM
     Dosage: 2 MG, ONCE
     Route: 042
     Dates: start: 20200120, end: 20200120
  3. OXTELLAR XR [Suspect]
     Active Substance: OXCARBAZEPINE
     Dosage: 600 MG, 2X/DAY
     Route: 048
     Dates: start: 20200120

REACTIONS (16)
  - Headache [Recovering/Resolving]
  - Drug withdrawal convulsions [Recovered/Resolved]
  - Product dose omission [Recovered/Resolved]
  - Head injury [Unknown]
  - Upper respiratory tract infection [Unknown]
  - Nausea [Unknown]
  - Febrile convulsion [Recovered/Resolved]
  - Seizure [Recovered/Resolved]
  - Blood potassium decreased [Unknown]
  - Fall [Recovered/Resolved]
  - Leukopenia [Unknown]
  - Pyrexia [Recovered/Resolved]
  - Blood phosphorus decreased [Recovered/Resolved]
  - Blood sodium decreased [Recovered/Resolved]
  - Somnolence [Unknown]
  - Urinary tract infection [Unknown]

NARRATIVE: CASE EVENT DATE: 202001
